FAERS Safety Report 8839896 (Version 1)
Quarter: 2012Q4

REPORT INFORMATION
  Report Type: 
  Country: US (occurrence: US)
  Receive Date: 20121015
  Receipt Date: 20121015
  Transmission Date: 20130627
  Serious: Yes (Hospitalization)
  Sender: FDA-Public Use
  Company Number: PHEH2012US017923

PATIENT
  Age: 72 Year
  Sex: Female

DRUGS (2)
  1. AFINITOR [Suspect]
     Indication: METASTATIC CARCINOID TUMOUR
     Dosage: 10 mg, QD
     Route: 048
     Dates: start: 20120828
  2. RAMIPRIL [Concomitant]
     Indication: HYPERTENSION

REACTIONS (3)
  - Small intestinal obstruction [Recovered/Resolved]
  - Dysmenorrhoea [Unknown]
  - Diarrhoea [Unknown]
